FAERS Safety Report 6147257-7 (Version None)
Quarter: 2009Q2

REPORT INFORMATION
  Report Type: 
  Country: None (occurrence: None)
  Receive Date: 20090408
  Receipt Date: 20090331
  Transmission Date: 20091009
  Serious: Yes (Hospitalization)
  Sender: FDA-Public Use
  Company Number: ES-JNJFOC-20090307436

PATIENT
  Age: 67 Year
  Sex: Female

DRUGS (6)
  1. DURAGESIC-100 [Suspect]
     Indication: PAIN
     Route: 062
  2. SEVREDOL [Interacting]
     Indication: PAIN
     Route: 048
  3. OMEPRAZOL [Concomitant]
     Indication: GASTROINTESTINAL DISORDER THERAPY
     Route: 048
  4. ENALAPRIL [Concomitant]
     Indication: BLOOD PRESSURE
     Route: 048
  5. ESERTIA [Concomitant]
     Indication: DEPRESSION
     Route: 048
  6. TRANXILIUM [Concomitant]
     Indication: DEPRESSION
     Route: 048

REACTIONS (3)
  - DRUG INTERACTION [None]
  - DRUG TOXICITY [None]
  - HOSPITALISATION [None]
